FAERS Safety Report 6503294-1 (Version None)
Quarter: 2009Q4

REPORT INFORMATION
  Report Type: 
  Country: None (occurrence: None)
  Receive Date: 20091201
  Receipt Date: 20090724
  Transmission Date: 20100525
  Serious: Yes (Hospitalization)
  Sender: FDA-Public Use
  Company Number: 2009SP016952

PATIENT
  Age: 26 Year
  Sex: Female
  Weight: 147.419 kg

DRUGS (1)
  1. NUVARING [Suspect]
     Indication: CONTRACEPTION
     Dosage: 1 DF; QM;VAG
     Route: 067
     Dates: start: 20060301, end: 20060921

REACTIONS (1)
  - PULMONARY EMBOLISM [None]
